FAERS Safety Report 7633322-1 (Version None)
Quarter: 2011Q3

REPORT INFORMATION
  Report Type: 
  Country: None (occurrence: None)
  Receive Date: 20110725
  Receipt Date: 20100624
  Transmission Date: 20111222
  Serious: No
  Sender: FDA-Public Use
  Company Number: US-BRISTOL-MYERS SQUIBB COMPANY-15165426

PATIENT
  Sex: Female

DRUGS (2)
  1. SPRYCEL [Suspect]
     Indication: CHRONIC MYELOID LEUKAEMIA
     Dosage: DECREASED TO 70MG DAILY LAST WEEK 06/14/2010
  2. GLEEVEC [Concomitant]

REACTIONS (6)
  - BLISTER [None]
  - COUGH [None]
  - ABDOMINAL DISCOMFORT [None]
  - PERIORBITAL OEDEMA [None]
  - TOOTH DISCOLOURATION [None]
  - DYSPNOEA [None]
